FAERS Safety Report 13221905 (Version 1)
Quarter: 2017Q1

REPORT INFORMATION
  Report Type: Spontaneous
  Country: US (occurrence: US)
  Receive Date: 20170211
  Receipt Date: 20170211
  Transmission Date: 20170428
  Serious: No
  Sender: FDA-Public Use
  Company Number: US-ELI_LILLY_AND_COMPANY-US201702003039

PATIENT
  Age: 82 Year
  Sex: Male

DRUGS (1)
  1. HUMALOG MIX75/25 [Suspect]
     Active Substance: INSULIN LISPRO
     Indication: TYPE 2 DIABETES MELLITUS
     Dosage: UNK, BID
     Route: 065
     Dates: start: 20170123

REACTIONS (2)
  - Blood glucose increased [Unknown]
  - Incorrect drug administration duration [Unknown]

NARRATIVE: CASE EVENT DATE: 20170205
